FAERS Safety Report 18172857 (Version 1)
Quarter: 2020Q3

REPORT INFORMATION
  Report Type: Report from Study
  Country: US (occurrence: US)
  Receive Date: 20200819
  Receipt Date: 20200819
  Transmission Date: 20201103
  Serious: Yes (Other)
  Sender: FDA-Public Use
  Company Number: NVSC2020US222726

PATIENT
  Age: 66 Year
  Sex: Female

DRUGS (1)
  1. PIQRAY [Suspect]
     Active Substance: ALPELISIB
     Indication: PRODUCT USED FOR UNKNOWN INDICATION
     Dosage: UNK
     Route: 050

REACTIONS (8)
  - Illness [Unknown]
  - Stomatitis [Unknown]
  - Dehydration [Unknown]
  - Alopecia [Unknown]
  - Rash [Unknown]
  - Blood glucose increased [Unknown]
  - Toxicity to various agents [Unknown]
  - Frustration tolerance decreased [Unknown]
